FAERS Safety Report 9090741 (Version 1)
Quarter: 2013Q1

REPORT INFORMATION
  Report Type: Report from Study
  Country: US (occurrence: US)
  Receive Date: 20130201
  Receipt Date: 20130201
  Transmission Date: 20140127
  Serious: No
  Sender: FDA-Public Use
  Company Number: US-ABBOTT-12P-163-1018467-00

PATIENT
  Age: 70 Year
  Sex: Female

DRUGS (6)
  1. HUMIRA [Suspect]
     Indication: CROHN^S DISEASE
     Dates: start: 20120802
  2. LISINOPRIL HCTZ [Concomitant]
     Indication: BLOOD PRESSURE INCREASED
     Dosage: 10-12 5MG 1/DAY
  3. GLYBURIDE [Concomitant]
     Indication: DIABETES MELLITUS
  4. METHOTREXATE [Concomitant]
  5. SULFASALAZINE [Concomitant]
  6. FOLIC ACID [Concomitant]

REACTIONS (2)
  - Oedema peripheral [Not Recovered/Not Resolved]
  - Erythema [Not Recovered/Not Resolved]
